FAERS Safety Report 22660765 (Version 3)
Quarter: 2023Q4

REPORT INFORMATION
  Report Type: Spontaneous
  Country: US (occurrence: US)
  Receive Date: 20230630
  Receipt Date: 20231107
  Transmission Date: 20240110
  Serious: Yes (Hospitalization, Other)
  Sender: FDA-Public Use
  Company Number: US-HIKMA PHARMACEUTICALS USA INC.-US-H14001-23-02239

PATIENT
  Age: 74 Year
  Sex: Female
  Weight: 97.52 kg

DRUGS (4)
  1. INFUMORPH [Suspect]
     Active Substance: MORPHINE SULFATE
     Indication: Spinal pain
     Dosage: 0.048 MILLIGRAM, QD
     Route: 037
     Dates: start: 20220919
  2. INFUMORPH [Suspect]
     Active Substance: MORPHINE SULFATE
     Dosage: 2.055 MILLIGRAM, QD
     Route: 037
  3. INFUMORPH [Suspect]
     Active Substance: MORPHINE SULFATE
     Dosage: 2.258 MILLIGRAM, QD
     Route: 037
  4. MELOXICAM [Concomitant]
     Active Substance: MELOXICAM
     Indication: Product used for unknown indication
     Dosage: 7.5 MILLIGRAM, QD
     Route: 065

REACTIONS (5)
  - Surgery [Recovered/Resolved]
  - Fall [Unknown]
  - Cervical vertebral fracture [Unknown]
  - Product dose omission issue [Unknown]
  - Underdose [Recovered/Resolved]

NARRATIVE: CASE EVENT DATE: 20220901
